FAERS Safety Report 5711698-X (Version None)
Quarter: 2008Q2

REPORT INFORMATION
  Report Type: 
  Country: None (occurrence: None)
  Receive Date: 20080421
  Receipt Date: 20080414
  Transmission Date: 20081010
  Serious: Yes (Death, Other)
  Sender: FDA-Public Use
  Company Number: PHBS2008DK04065

PATIENT
  Age: 46 Year
  Sex: Male

DRUGS (4)
  1. CYCLOSPORINE [Suspect]
     Indication: RENAL TRANSPLANT
     Dosage: 5 MG/KG/D
     Route: 065
     Dates: start: 19890101, end: 20020101
  2. MYCOPHENOLATE MOFETIL [Concomitant]
     Indication: RENAL TRANSPLANT
     Route: 065
  3. PREDNISOLONE [Concomitant]
     Indication: RENAL TRANSPLANT
  4. SIROLIMUS [Suspect]
     Dosage: 2 MG/D
     Dates: start: 20020401

REACTIONS (14)
  - ACTINIC KERATOSIS [None]
  - BASAL CELL CARCINOMA [None]
  - BOWEN'S DISEASE [None]
  - CHRONIC ALLOGRAFT NEPHROPATHY [None]
  - COMPLICATIONS OF TRANSPLANTED KIDNEY [None]
  - ELECTRON RADIATION THERAPY TO SKIN [None]
  - ERYSIPELAS [None]
  - IMPAIRED HEALING [None]
  - LYMPHANGIOSIS CARCINOMATOSA [None]
  - MALIGNANT TUMOUR EXCISION [None]
  - RENAL FAILURE [None]
  - SKIN INFLAMMATION [None]
  - SKIN PAPILLOMA [None]
  - SQUAMOUS CELL CARCINOMA OF SKIN [None]
